FAERS Safety Report 14168101 (Version 3)
Quarter: 2018Q1

REPORT INFORMATION
  Report Type: Spontaneous
  Country: RU (occurrence: RU)
  Receive Date: 20171108
  Receipt Date: 20180319
  Transmission Date: 20180508
  Serious: Yes (Other)
  Sender: FDA-Public Use
  Company Number: RU-ASTRAZENECA-2017SF12528

PATIENT
  Age: 56 Year
  Sex: Male
  Weight: 77 kg

DRUGS (6)
  1. INDAPAMIDE. [Concomitant]
     Active Substance: INDAPAMIDE
     Dates: start: 201702
  2. CARDILOPIN [Concomitant]
     Dates: start: 201702
  3. CONCOR [Concomitant]
     Active Substance: BISOPROLOL FUMARATE
     Dates: start: 201702
  4. THROMBO ASS [Concomitant]
     Active Substance: ASPIRIN
     Dates: start: 201702
  5. LIPRIMAR [Concomitant]
     Active Substance: ATORVASTATIN CALCIUM
     Dates: start: 201702
  6. BRILINTA [Suspect]
     Active Substance: TICAGRELOR
     Indication: MYOCARDIAL INFARCTION
     Route: 048
     Dates: start: 201702

REACTIONS (4)
  - Vascular stent thrombosis [Recovered/Resolved]
  - Off label use [Unknown]
  - Product use issue [Unknown]
  - Angina pectoris [Unknown]

NARRATIVE: CASE EVENT DATE: 20180115
